FAERS Safety Report 4681982-X (Version None)
Quarter: 2005Q2

REPORT INFORMATION
  Report Type: 
  Country: None (occurrence: None)
  Receive Date: 20050602
  Receipt Date: 20050513
  Transmission Date: 20051028
  Serious: Yes (Other)
  Sender: FDA-Public Use
  Company Number: GBS040915606

PATIENT
  Age: 60 Year
  Sex: Female

DRUGS (5)
  1. FORTEO [Suspect]
     Indication: OSTEOPOROSIS
     Dosage: 20 UG DAY
     Dates: start: 20040601
  2. NEXIUM [Concomitant]
  3. MOGADON (NITRAZEPAM) [Concomitant]
  4. FOLIC ACID [Concomitant]
  5. DONA (GLUCOSAMINE SULFATE) [Concomitant]

REACTIONS (2)
  - OEDEMA PERIPHERAL [None]
  - PRESCRIBED OVERDOSE [None]
